FAERS Safety Report 16140102 (Version 3)
Quarter: 2021Q4

REPORT INFORMATION
  Report Type: Report from Study
  Country: US (occurrence: US)
  Receive Date: 20190331
  Receipt Date: 20211210
  Transmission Date: 20220303
  Serious: No
  Sender: FDA-Public Use
  Company Number: PHEH2019US013700

PATIENT
  Age: 4 Year
  Sex: Female

DRUGS (2)
  1. ILARIS [Suspect]
     Active Substance: CANAKINUMAB
     Indication: Autoinflammatory disease
     Dosage: 25 MG (Q 8 WEEKS)
     Route: 058
     Dates: start: 20190322
  2. ILARIS [Suspect]
     Active Substance: CANAKINUMAB
     Indication: Pyrexia

REACTIONS (3)
  - Inappropriate schedule of product administration [Unknown]
  - Condition aggravated [Unknown]
  - Injection site rash [Unknown]

NARRATIVE: CASE EVENT DATE: 20211109
